FAERS Safety Report 5637975-9 (Version None)
Quarter: 2008Q1

REPORT INFORMATION
  Report Type: 
  Country: None (occurrence: None)
  Receive Date: 20080226
  Receipt Date: 20080121
  Transmission Date: 20080703
  Serious: No
  Sender: FDA-Public Use
  Company Number: US-BAYER-200812419NA

PATIENT
  Age: 55 Year
  Sex: Female
  Weight: 132 kg

DRUGS (6)
  1. CLIMARA [Suspect]
     Indication: HORMONE REPLACEMENT THERAPY
     Route: 062
     Dates: start: 20071216, end: 20080107
  2. PROMETRIUM [Concomitant]
  3. DIOVAN [Concomitant]
  4. LIPITOR [Concomitant]
  5. MELLITRON [CHLORPROPAMIDE,METFORMIN] [Concomitant]
  6. MULTIVITAMIN AND MINERAL [Concomitant]

REACTIONS (1)
  - RASH ERYTHEMATOUS [None]
